FAERS Safety Report 5280639-4 (Version None)
Quarter: 2007Q1

REPORT INFORMATION
  Report Type: 
  Country: None (occurrence: None)
  Receive Date: 20061221
  Receipt Date: 20061007
  Transmission Date: 20070707
  Serious: Yes (Death)
  Sender: FDA-Public Use
  Company Number: US-CVT-062234

PATIENT
  Age: 80 Year
  Sex: Female

DRUGS (1)
  1. RANEXA [Suspect]
     Indication: VENTRICULAR TACHYCARDIA
     Dosage: 600MG, BID, ORAL
     Route: 048
     Dates: start: 20060101, end: 20060101

REACTIONS (2)
  - CARDIAC FAILURE [None]
  - THERAPEUTIC RESPONSE UNEXPECTED [None]
